FAERS Safety Report 7561296-0 (Version None)
Quarter: 2011Q2

REPORT INFORMATION
  Report Type: 
  Country: None (occurrence: None)
  Receive Date: 20110621
  Receipt Date: 20110225
  Transmission Date: 20111010
  Serious: No
  Sender: FDA-Public Use
  Company Number: US-ASTRAZENECA-2010SE37043

PATIENT
  Age: 91 Year
  Sex: Female

DRUGS (9)
  1. BROVANA [Concomitant]
  2. BUDESONIDE [Suspect]
     Dosage: GENERIC
     Route: 065
  3. PULMICORT FLEXHALER [Suspect]
     Route: 055
  4. AMLODIPINE [Concomitant]
  5. LISINOPRIL [Concomitant]
  6. ALBUTEROL SULFATE AUTOHALER [Concomitant]
  7. SPIRIVA INHALANT [Concomitant]
  8. OMEPRAZOLE [Concomitant]
  9. PULMICORT FLEXHALER [Suspect]
     Route: 055

REACTIONS (3)
  - PNEUMONIA [None]
  - DRUG DOSE OMISSION [None]
  - LUNG INFECTION [None]
